FAERS Safety Report 9615605 (Version 1)
Quarter: 2013Q4

REPORT INFORMATION
  Report Type: Spontaneous
  Country: US (occurrence: US)
  Receive Date: 20131011
  Receipt Date: 20131011
  Transmission Date: 20140711
  Serious: Yes (Other)
  Sender: FDA-Public Use
  Company Number: US-SA-2013SA101724

PATIENT
  Age: 41 Year
  Sex: Female
  Weight: 71.7 kg

DRUGS (17)
  1. FABRAZYME [Suspect]
     Indication: FABRY^S DISEASE
     Dosage: DOSE : 70 MG, QOW
     Route: 042
     Dates: start: 20120319
  2. SODIUM CHLORIDE [Concomitant]
  3. NORMAL SALINE [Concomitant]
  4. WATER FOR INJECTION [Concomitant]
  5. EPIPEN [Concomitant]
  6. MACROBID [Concomitant]
  7. ACETAMINOPHEN [Concomitant]
  8. SOLUMEDROL [Concomitant]
  9. FIORICET [Concomitant]
  10. OXYCONTIN [Concomitant]
  11. PROZAC [Concomitant]
  12. SINGULAIR [Concomitant]
  13. ADDERALL [Concomitant]
  14. MOBIC [Concomitant]
  15. TOPAMAX [Concomitant]
  16. LORTAB [Concomitant]
  17. DEXILANT [Concomitant]

REACTIONS (1)
  - Kidney infection [Unknown]
